FAERS Safety Report 5815151-4 (Version None)
Quarter: 2008Q3

REPORT INFORMATION
  Report Type: 
  Country: None (occurrence: None)
  Receive Date: 20080718
  Receipt Date: 20080708
  Transmission Date: 20090109
  Serious: Yes (Hospitalization, Other)
  Sender: FDA-Public Use
  Company Number: US-ABBOTT-07P-163-0427603-00

PATIENT
  Sex: Male
  Weight: 93 kg

DRUGS (9)
  1. HUMIRA [Suspect]
     Indication: PSORIASIS
     Route: 058
     Dates: start: 20050531, end: 20071204
  2. ALBUTEROL [Concomitant]
     Indication: ASTHMA
     Dates: start: 20030301
  3. ADVIR [Concomitant]
     Indication: ASTHMA
     Dosage: 250/50
     Dates: start: 20030301
  4. ANASTROZOLE [Concomitant]
     Indication: BENIGN PROSTATIC HYPERPLASIA
     Dates: start: 20030301
  5. TESTOSTERONE [Concomitant]
     Indication: BENIGN PROSTATIC HYPERPLASIA
     Dates: start: 20030301
  6. CETIRIZINE HCL [Concomitant]
     Indication: HYPERSENSITIVITY
     Dosage: 120/5 MG
     Dates: start: 20030201
  7. TAMSULOSIN HCL [Concomitant]
     Indication: BENIGN PROSTATIC HYPERPLASIA
     Dates: start: 20030301
  8. PIOGLITAZONE HCL [Concomitant]
     Indication: HYPERLIPIDAEMIA
     Dates: start: 20030301
  9. HYDROCORTISONE [Concomitant]
     Indication: PSORIASIS
     Dosage: 2%
     Dates: start: 20070409, end: 20070416

REACTIONS (3)
  - AGNOSIA [None]
  - LOCALISED OEDEMA [None]
  - MASS [None]
